FAERS Safety Report 9290922 (Version 1)
Quarter: 2013Q2

REPORT INFORMATION
  Report Type: Spontaneous
  Country: US (occurrence: US)
  Receive Date: 20130515
  Receipt Date: 20130515
  Transmission Date: 20140414
  Serious: Yes (Hospitalization)
  Sender: FDA-Public Use
  Company Number: US-BAYER-2013-059700

PATIENT
  Age: 18 Year
  Sex: Female
  Weight: 57 kg

DRUGS (5)
  1. ALKA-SELTZER PLUS COLD + COUGH FORMULA LIQUID GEL [Suspect]
     Route: 048
  2. ZOLOFT [Concomitant]
  3. ALLEGRA [Concomitant]
  4. SINGULAIR [Concomitant]
  5. CLARITIN [Concomitant]

REACTIONS (5)
  - Intentional overdose [None]
  - Nausea [Recovered/Resolved]
  - Drug screen positive [None]
  - Suicide attempt [None]
  - Vomiting [None]
